FAERS Safety Report 11944552 (Version 1)
Quarter: 2016Q1

REPORT INFORMATION
  Report Type: Report from Study
  Country: BR (occurrence: BR)
  Receive Date: 20160125
  Receipt Date: 20160125
  Transmission Date: 20160526
  Serious: Yes (Other)
  Sender: FDA-Public Use
  Company Number: PHHY2016BR008102

PATIENT
  Age: 61 Year
  Sex: Female
  Weight: 72 kg

DRUGS (1)
  1. FORASEQ [Suspect]
     Active Substance: BUDESONIDE\FORMOTEROL FUMARATE
     Indication: ASTHMA
     Dosage: 400 UG, Q12H
     Route: 065
     Dates: start: 2008

REACTIONS (6)
  - Ankle fracture [Unknown]
  - Foot deformity [Unknown]
  - Gait disturbance [Unknown]
  - Fatigue [Unknown]
  - Asthma [Unknown]
  - Chest pain [Unknown]

NARRATIVE: CASE EVENT DATE: 20150726
